FAERS Safety Report 23250418 (Version 1)
Quarter: 2023Q4

REPORT INFORMATION
  Report Type: Spontaneous
  Country: US (occurrence: US)
  Receive Date: 20231201
  Receipt Date: 20231201
  Transmission Date: 20240109
  Serious: Yes (Other)
  Sender: FDA-Public Use
  Company Number: US-MYE-2023M1126229AA

PATIENT
  Age: 36 Year
  Sex: Female

DRUGS (3)
  1. ZOLEDRONIC ACID [Suspect]
     Active Substance: ZOLEDRONIC ACID
     Indication: Breast cancer stage IV
     Dosage: 4 MILLIGRAM (EVERY 6 WEEKS)
     Route: 065
     Dates: start: 201906, end: 202103
  2. ZOLEDRONIC ACID [Suspect]
     Active Substance: ZOLEDRONIC ACID
     Indication: Metastases to bone
  3. DENOSUMAB [Suspect]
     Active Substance: DENOSUMAB
     Indication: Breast cancer stage IV
     Dosage: 120 MILLIGRAM, ONCE (RECEIVED ONCE)
     Route: 065
     Dates: start: 201906

REACTIONS (3)
  - Paranasal sinus necrosis [Unknown]
  - Bone loss [Unknown]
  - Osteonecrosis of jaw [Recovering/Resolving]

NARRATIVE: CASE EVENT DATE: 20210825
